FAERS Safety Report 9344912 (Version 2)
Quarter: 2013Q3

REPORT INFORMATION
  Report Type: Spontaneous
  Country: IE (occurrence: IE)
  Receive Date: 20130612
  Receipt Date: 20130806
  Transmission Date: 20140515
  Serious: Yes (Other)
  Sender: FDA-Public Use
  Company Number: IE-ASTRAZENECA-2013SE40666

PATIENT
  Sex: Male

DRUGS (2)
  1. SYMBICORT [Suspect]
     Indication: ASTHMA
     Dosage: 200/6 MCG WITH UNKNOWN FREQUENCY
     Route: 055
  2. SYMBICORT [Suspect]
     Indication: ASTHMA
     Dosage: 200/6 MCG WITH UNKNOWN FREQUENCY
     Route: 055

REACTIONS (4)
  - Chest discomfort [Unknown]
  - Panic reaction [Unknown]
  - Palpitations [Unknown]
  - Anxiety [Unknown]
